FAERS Safety Report 15416251 (Version 1)
Quarter: 2018Q3

REPORT INFORMATION
  Report Type: Spontaneous
  Country: US (occurrence: US)
  Receive Date: 20180923
  Receipt Date: 20180923
  Transmission Date: 20181010
  Serious: Yes (Other)
  Sender: FDA-Public Use
  Company Number: US-BAXTER-2018BAX024154

PATIENT
  Sex: Female

DRUGS (5)
  1. SERTRALINE [Suspect]
     Active Substance: SERTRALINE HYDROCHLORIDE
     Indication: DEPRESSION
     Dosage: INITIAL TWO TRIMESTERS
     Route: 065
  2. ONDANSETRON INJECTION, USP?SINGLE DOSE [Suspect]
     Active Substance: ONDANSETRON
     Indication: VOMITING
     Route: 065
  3. PROGESTERONE. [Suspect]
     Active Substance: PROGESTERONE
     Indication: PROPHYLAXIS
     Dosage: HIGH?DOSE PROGESTERONE ADMINISTERED DURING TWIN PREGNANCY
     Route: 065
  4. ESCITALOPRAM [Suspect]
     Active Substance: ESCITALOPRAM OXALATE
     Indication: DEPRESSION
     Dosage: FINAL TRIMESTER
     Route: 065
  5. PROGESTERONE. [Suspect]
     Active Substance: PROGESTERONE
     Dosage: HIGH?DOSE PROGESTERONE FROM 16 WEEKS OF GESTATION
     Route: 065

REACTIONS (2)
  - Exposure during pregnancy [Recovered/Resolved]
  - Human herpesvirus 6 infection [Recovered/Resolved]
